FAERS Safety Report 20639367 (Version 1)
Quarter: 2022Q1

REPORT INFORMATION
  Report Type: Report from Study
  Country: IN (occurrence: IN)
  Receive Date: 20220326
  Receipt Date: 20220326
  Transmission Date: 20220424
  Serious: Yes (Death)
  Sender: FDA-Public Use
  Company Number: IN-NOVARTISPH-NVSC2022IN037380

PATIENT
  Age: 75 Year
  Sex: Male

DRUGS (3)
  1. SACUBITRIL\VALSARTAN [Suspect]
     Active Substance: SACUBITRIL\VALSARTAN
     Indication: Cardiac failure
     Dosage: 50 MG, BID (HALF TABLET) FOR FIRST 15 DAYS
     Route: 048
     Dates: start: 20220207
  2. SACUBITRIL\VALSARTAN [Suspect]
     Active Substance: SACUBITRIL\VALSARTAN
     Dosage: 50 MG, BID
     Route: 048
  3. SACUBITRIL\VALSARTAN [Suspect]
     Active Substance: SACUBITRIL\VALSARTAN
     Dosage: 50 MG, QD
     Route: 065

REACTIONS (3)
  - Cardiac arrest [Fatal]
  - Wrong technique in product usage process [Unknown]
  - Product prescribing error [Unknown]

NARRATIVE: CASE EVENT DATE: 20220207
